FAERS Safety Report 9399827 (Version 1)
Quarter: 2013Q3

REPORT INFORMATION
  Report Type: Spontaneous
  Country: US (occurrence: US)
  Receive Date: 20130715
  Receipt Date: 20130715
  Transmission Date: 20140515
  Serious: Yes (Other)
  Sender: FDA-Public Use
  Company Number: US-JNJFOC-20130701922

PATIENT
  Sex: Female
  Weight: 72.58 kg

DRUGS (2)
  1. UNSPECIFIED GENERIC FENTANYL PATCH [Suspect]
     Indication: NERVE INJURY
     Route: 062
  2. INSULIN [Concomitant]
     Indication: DIABETES MELLITUS
     Route: 065
     Dates: start: 2008

REACTIONS (7)
  - Blood glucose increased [Recovered/Resolved]
  - Acne [Recovered/Resolved]
  - Drug hypersensitivity [Not Recovered/Not Resolved]
  - Therapeutic response unexpected with drug substitution [Recovered/Resolved]
  - Product quality issue [Unknown]
  - Drug ineffective [None]
  - Product adhesion issue [None]
